FAERS Safety Report 9729105 (Version 1)
Quarter: 2013Q4

REPORT INFORMATION
  Report Type: Spontaneous
  Country: US (occurrence: US)
  Receive Date: 20131204
  Receipt Date: 20131204
  Transmission Date: 20140711
  Serious: Yes (Hospitalization)
  Sender: FDA-Public Use
  Company Number: PHHY2013US136372

PATIENT
  Age: 45 Year
  Sex: Female

DRUGS (1)
  1. AMOXICILLIN [Suspect]
     Indication: WISDOM TEETH REMOVAL
     Dosage: 875 MG, BID
     Route: 048

REACTIONS (12)
  - Drug-induced liver injury [Recovered/Resolved]
  - Jaundice [Recovered/Resolved]
  - Pruritus [Recovered/Resolved]
  - Hepatic enzyme increased [Recovered/Resolved]
  - Hepatitis acute [Recovered/Resolved]
  - Hyperplastic cholecystopathy [Recovered/Resolved]
  - Biliary tract disorder [Recovered/Resolved]
  - Cholestasis [Recovered/Resolved]
  - Cholangitis [Recovered/Resolved]
  - Hepatic fibrosis [Recovered/Resolved]
  - Portal triaditis [Recovered/Resolved]
  - Pancreatic cyst [Recovered/Resolved]
